FAERS Safety Report 12852113 (Version 1)
Quarter: 2016Q4

REPORT INFORMATION
  Report Type: Spontaneous
  Country: US (occurrence: US)
  Receive Date: 20161014
  Receipt Date: 20161014
  Transmission Date: 20170207
  Serious: Yes (Other)
  Sender: FDA-Public Use
  Company Number: None

PATIENT
  Age: 85 Year
  Sex: Male
  Weight: 61 kg

DRUGS (1)
  1. AMIODARONE [Suspect]
     Active Substance: AMIODARONE
     Route: 048
     Dates: start: 20160727, end: 20161013

REACTIONS (3)
  - Pulmonary fibrosis [None]
  - Pulmonary function test decreased [None]
  - Dyspnoea [None]

NARRATIVE: CASE EVENT DATE: 20161013
